FAERS Safety Report 9195824 (Version 2)
Quarter: 2013Q2

REPORT INFORMATION
  Report Type: Spontaneous
  Country: US (occurrence: None)
  Receive Date: 20120703
  Receipt Date: 20121031
  Transmission Date: 20140414
  Serious: Yes (Other)
  Sender: FDA-Public Use
  Company Number: PHEH2012US010774

PATIENT
  Age: 33 Year
  Sex: Female
  Weight: 54.4 kg

DRUGS (13)
  1. GILENYA [Suspect]
     Indication: MULTIPLE SCLEROSIS
     Route: 048
     Dates: start: 20110822
  2. SOMA (CARISOPRODOL) [Concomitant]
  3. VICODIN (HYDROCODONE BITARTRATE, PARACETAMOL) [Concomitant]
  4. BACLOFEN (BACLOFEN) (BACLOFEN) [Concomitant]
  5. VITAMIN D3 (COLECALCIFEROL) [Concomitant]
  6. BUSPIRONE HYDROCHLORIDE (BUSPIRONE HYDROCHLORIDE) [Concomitant]
  7. SERTRALINE HYDROCHLORIDE (SERTRALINE HYDROCHLORIDE) [Concomitant]
  8. GABAPENTIN (GABAPENTIN) [Concomitant]
  9. TIZANIDINE HYDROCHLORIDE (TIZANIDINE HYDROCHLORIDE) [Concomitant]
  10. CALCIUM (CALCIUM) [Concomitant]
  11. CARISOPRODOL (CARISOPRODOL) [Concomitant]
  12. CYMBALTA (DULOXETINE HYDROCHLORIDE) [Concomitant]
  13. VITAMIN D (ERGOCALCIFEROL) [Concomitant]

REACTIONS (6)
  - Arthralgia [None]
  - Somnolence [None]
  - Malaise [None]
  - Fatigue [None]
  - Vertigo CNS origin [None]
  - Headache [None]
